FAERS Safety Report 12459619 (Version 1)
Quarter: 2016Q2

REPORT INFORMATION
  Report Type: Spontaneous
  Country: US (occurrence: None)
  Receive Date: 20160610
  Receipt Date: 20160610
  Transmission Date: 20160815
  Serious: No
  Sender: FDA-Public Use
  Company Number: None

PATIENT
  Age: 78 Year
  Sex: Female

DRUGS (1)
  1. VISIPAQUE [Suspect]
     Active Substance: IODIXANOL

REACTIONS (4)
  - Throat irritation [None]
  - Pruritus [None]
  - Eye pruritus [None]
  - Nasal pruritus [None]

NARRATIVE: CASE EVENT DATE: 20160527
